FAERS Safety Report 6182357-7 (Version None)
Quarter: 2009Q2

REPORT INFORMATION
  Report Type: 
  Country: None (occurrence: None)
  Receive Date: 20090505
  Receipt Date: 20090505
  Transmission Date: 20091009
  Serious: Yes (Hospitalization)
  Sender: FDA-Public Use
  Company Number: None

PATIENT
  Age: 67 Year
  Sex: Female
  Weight: 74.3899 kg

DRUGS (2)
  1. NEVANAC [Suspect]
     Indication: CATARACT OPERATION
     Dosage: I DROP OS TID OPHTHALMIC
     Route: 047
     Dates: start: 20090116, end: 20090118
  2. NEVANAC [Suspect]
     Indication: POSTOPERATIVE CARE
     Dosage: I DROP OS TID OPHTHALMIC
     Route: 047
     Dates: start: 20090116, end: 20090118

REACTIONS (5)
  - CHEST DISCOMFORT [None]
  - CHEST PAIN [None]
  - DRUG HYPERSENSITIVITY [None]
  - HEART RATE INCREASED [None]
  - HYPERTENSION [None]
